FAERS Safety Report 5441101-9 (Version None)
Quarter: 2007Q3

REPORT INFORMATION
  Report Type: 
  Country: None (occurrence: None)
  Receive Date: 20070831
  Receipt Date: 20070820
  Transmission Date: 20080115
  Serious: Yes (Other)
  Sender: FDA-Public Use
  Company Number: GB-PFIZER INC-2007065407

PATIENT
  Sex: Male
  Weight: 90 kg

DRUGS (1)
  1. CHAMPIX [Suspect]
     Route: 048
     Dates: start: 20070714, end: 20070731

REACTIONS (5)
  - BLISTER [None]
  - HYPERSENSITIVITY [None]
  - RASH [None]
  - SWELLING FACE [None]
  - URTICARIA [None]
